FAERS Safety Report 9777373 (Version 1)
Quarter: 2013Q4

REPORT INFORMATION
  Report Type: Report from Study
  Country: US (occurrence: US)
  Receive Date: 20131221
  Receipt Date: 20131221
  Transmission Date: 20140711
  Serious: Yes (Other)
  Sender: FDA-Public Use
  Company Number: PHEH2013US025786

PATIENT
  Age: 21 Year
  Sex: Female

DRUGS (4)
  1. AFINITOR [Suspect]
     Indication: ANGIOMYOLIPOMA
     Dosage: 7.5 MG, DAILY
     Route: 048
     Dates: start: 20130917
  2. LAMICTAL [Concomitant]
  3. PROZAC [Concomitant]
  4. RISPERDAL [Concomitant]

REACTIONS (2)
  - Lymphangioleiomyomatosis [Not Recovered/Not Resolved]
  - Cyst [Not Recovered/Not Resolved]
